FAERS Safety Report 5197720-0 (Version None)
Quarter: 2007Q1

REPORT INFORMATION
  Report Type: 
  Country: None (occurrence: None)
  Receive Date: 20070103
  Receipt Date: 20061221
  Transmission Date: 20070707
  Serious: Yes (Other)
  Sender: FDA-Public Use
  Company Number: PT-JNJFOC-20061206203

PATIENT
  Age: 46 Year
  Sex: Female

DRUGS (4)
  1. RISPERDAL CONSTA [Suspect]
     Indication: SCHIZOPHRENIA
     Route: 030
  2. LORAZEPAM [Concomitant]
  3. ZOLPIDEM TARTRATE [Concomitant]
  4. ZELDOX [Concomitant]

REACTIONS (8)
  - AUTOIMMUNE DISORDER [None]
  - COGWHEEL RIGIDITY [None]
  - DIPLOPIA [None]
  - HAEMOGLOBIN DECREASED [None]
  - LYMPHOCYTE COUNT DECREASED [None]
  - NEOPLASM MALIGNANT [None]
  - PLATELET COUNT DECREASED [None]
  - PSYCHOMOTOR SKILLS IMPAIRED [None]
